APPROVED DRUG PRODUCT: LOTREL
Active Ingredient: AMLODIPINE BESYLATE; BENAZEPRIL HYDROCHLORIDE
Strength: EQ 5MG BASE;40MG
Dosage Form/Route: CAPSULE;ORAL
Application: N020364 | Product #007 | TE Code: AB
Applicant: SANDOZ INC
Approved: Apr 11, 2006 | RLD: Yes | RS: No | Type: RX